FAERS Safety Report 8212597-4 (Version None)
Quarter: 2012Q1

REPORT INFORMATION
  Report Type: 
  Country: None (occurrence: None)
  Receive Date: 20120228
  Receipt Date: 20111017
  Transmission Date: 20120608
  Serious: Yes (Hospitalization)
  Sender: FDA-Public Use
  Company Number: RB-33143-2011

PATIENT
  Age: 36 Year
  Sex: Female

DRUGS (1)
  1. SUBOXONE [Suspect]
     Indication: PRODUCT USED FOR UNKNOWN INDICATION
     Dosage: SEE IMAGE

REACTIONS (7)
  - RHINORRHOEA [None]
  - PYREXIA [None]
  - INTENTIONAL OVERDOSE [None]
  - DIARRHOEA [None]
  - VOMITING [None]
  - ASTHENIA [None]
  - PAIN [None]
